FAERS Safety Report 8137299-4 (Version None)
Quarter: 2012Q1

REPORT INFORMATION
  Report Type: 
  Country: None (occurrence: None)
  Receive Date: 20120210
  Receipt Date: 20120130
  Transmission Date: 20120608
  Serious: Yes (Hospitalization)
  Sender: FDA-Public Use
  Company Number: 2012MA001592

PATIENT
  Age: 27 Year
  Sex: Female

DRUGS (9)
  1. ACYCLOVIR [Suspect]
     Indication: MENINGITIS
     Dosage: 600 MG;TID;IV
     Route: 042
     Dates: start: 20120103, end: 20120105
  2. IBUPROFEN [Concomitant]
  3. ACYCLOVIR [Suspect]
     Indication: MENINGITIS
  4. CEFTRIAXONE [Suspect]
     Indication: INFECTION
     Dosage: 4 GM;QD;IV
     Route: 042
  5. TRAMADOL HCL [Concomitant]
  6. CODEINE [Concomitant]
  7. ENOXAPARIN SODIUM [Concomitant]
  8. ACYCLOVIR [Suspect]
     Indication: MENINGITIS
  9. ACETAMINOPHEN [Concomitant]

REACTIONS (2)
  - SERUM FERRITIN INCREASED [None]
  - HEPATIC ENZYME ABNORMAL [None]
